FAERS Safety Report 9839404 (Version 2)
Quarter: 2014Q1

REPORT INFORMATION
  Report Type: Report from Study
  Country: US (occurrence: US)
  Receive Date: 20140123
  Receipt Date: 20140123
  Transmission Date: 20141002
  Serious: Yes (Hospitalization)
  Sender: FDA-Public Use
  Company Number: US-ROCHE-1249693

PATIENT
  Age: 59 Year
  Sex: 0

DRUGS (6)
  1. BEVACIZUMAB [Suspect]
     Indication: GASTROINTESTINAL CARCINOMA
     Dosage: LAST DOSE PRIOR TO AE: 17/JUN/2013
     Route: 042
     Dates: start: 20130222
  2. LEUCOVORIN [Suspect]
     Indication: GASTROINTESTINAL CARCINOMA
     Dosage: LAST DOSE PRIOR TO AE: 17/JUN/2013
     Route: 042
     Dates: start: 20130222
  3. FLUOROURACIL [Suspect]
     Indication: GASTROINTESTINAL CARCINOMA
     Dosage: LAST DOSE PRIOR TO AE: 17/JUN/2013
     Route: 042
     Dates: start: 20130222
  4. FLUOROURACIL [Suspect]
     Dosage: LAST DOSE PRIOR TO AE: 17/JUN/2013
     Route: 040
  5. IRINOTECAN [Suspect]
     Indication: GASTROINTESTINAL CARCINOMA
     Dosage: LAST DOSE PRIOR TO AE: 17/JUN/2013
     Route: 042
     Dates: start: 20130222
  6. SORAFENIB [Suspect]
     Indication: GASTROINTESTINAL CARCINOMA
     Dosage: LAST DOSE PRIOR TO AE: 17/JUN/2013 AND 19/NOV/2013.
     Route: 048
     Dates: start: 20130222

REACTIONS (4)
  - Lung infection [Recovered/Resolved]
  - Bacterial pericarditis [Unknown]
  - Cardiac tamponade [Unknown]
  - Oesophageal fistula [Unknown]
